FAERS Safety Report 4517116-1 (Version None)
Quarter: 2004Q4

REPORT INFORMATION
  Report Type: 
  Country: None (occurrence: None)
  Receive Date: 20041202
  Receipt Date: 20041111
  Transmission Date: 20050328
  Serious: Yes (Other)
  Sender: FDA-Public Use
  Company Number: CA-AMGEN-US099399

PATIENT
  Sex: Female

DRUGS (6)
  1. KINERET [Suspect]
     Indication: RHEUMATOID ARTHRITIS
     Route: 058
     Dates: start: 20030401, end: 20040701
  2. METHOTREXATE [Concomitant]
     Dates: start: 19960101
  3. PREDNISONE [Concomitant]
     Dates: start: 19970201, end: 20040701
  4. FOSAMAX [Concomitant]
  5. VIOXX [Concomitant]
  6. NEXIUM [Concomitant]

REACTIONS (4)
  - CHRONIC LYMPHOCYTIC LEUKAEMIA [None]
  - DYSPEPSIA [None]
  - SPINAL CORD COMPRESSION [None]
  - WEIGHT DECREASED [None]
